FAERS Safety Report 7159091-X (Version None)
Quarter: 2010Q4

REPORT INFORMATION
  Report Type: 
  Country: None (occurrence: None)
  Receive Date: 20101214
  Receipt Date: 20101203
  Transmission Date: 20110411
  Serious: Yes (Life-Threatening, Hospitalization)
  Sender: FDA-Public Use
  Company Number: FR-SANOFI-AVENTIS-2010SA073280

PATIENT
  Age: 79 Year
  Sex: Female

DRUGS (8)
  1. LASIX [Suspect]
     Route: 048
     Dates: end: 20101011
  2. MODAMIDE [Suspect]
     Route: 048
     Dates: end: 20101011
  3. FORTZAAR [Suspect]
     Route: 048
     Dates: end: 20101011
  4. GLUCOPHAGE [Suspect]
     Route: 048
     Dates: end: 20101011
  5. DIAMICRON [Suspect]
     Route: 048
     Dates: end: 20101011
  6. JANUVIA [Suspect]
     Route: 048
     Dates: end: 20101011
  7. ATENOLOL [Suspect]
     Route: 048
     Dates: end: 20101011
  8. ALLOPURINOL [Suspect]
     Route: 048
     Dates: end: 20101011

REACTIONS (4)
  - DEHYDRATION [None]
  - HYPERKALAEMIA [None]
  - LACTIC ACIDOSIS [None]
  - RENAL FAILURE ACUTE [None]
